FAERS Safety Report 15744812 (Version 1)
Quarter: 2018Q4

REPORT INFORMATION
  Report Type: Spontaneous
  Country: US (occurrence: US)
  Receive Date: 20181220
  Receipt Date: 20181220
  Transmission Date: 20190205
  Serious: No
  Sender: FDA-Public Use
  Company Number: US-SHIRE-US201849098

PATIENT
  Sex: Female

DRUGS (1)
  1. XIIDRA [Suspect]
     Active Substance: LIFITEGRAST
     Indication: DRY EYE
     Dosage: 5% SOLUTION
     Route: 047
     Dates: start: 201811, end: 201812

REACTIONS (2)
  - Instillation site reaction [Unknown]
  - Corneal disorder [Unknown]
